FAERS Safety Report 22974482 (Version 4)
Quarter: 2023Q4

REPORT INFORMATION
  Report Type: Spontaneous
  Country: TW (occurrence: TW)
  Receive Date: 20230923
  Receipt Date: 20231218
  Transmission Date: 20240110
  Serious: Yes (Life-Threatening, Other)
  Sender: FDA-Public Use
  Company Number: TW-002147023-NVSC2023TW203551

PATIENT
  Age: 69 Year
  Sex: Male
  Weight: 71 kg

DRUGS (5)
  1. AMOXICILLIN\CLAVULANATE POTASSIUM [Suspect]
     Active Substance: AMOXICILLIN\CLAVULANATE POTASSIUM
     Indication: Pneumonia
     Dosage: 1.2 G, STAT (INTRAVENOUS DRIP)
     Route: 042
     Dates: start: 20230902
  2. FLOMOXEF [Concomitant]
     Active Substance: FLOMOXEF
     Indication: Product used for unknown indication
     Dosage: UNK
     Route: 065
     Dates: end: 20230911
  3. KETOPROFEN [Concomitant]
     Active Substance: KETOPROFEN
     Indication: Analgesic therapy
     Dosage: 50 MG, STAT
     Route: 030
     Dates: start: 20230902
  4. NOREPINEPHRINE [Concomitant]
     Active Substance: NOREPINEPHRINE
     Indication: Hypotension
     Dosage: UNK (PUMP)
     Route: 065
  5. SOLU-CORTEF [Concomitant]
     Active Substance: HYDROCORTISONE SODIUM SUCCINATE
     Indication: Pneumonia
     Dosage: 100 MG, STAT (INTRAVENOUS DRIP) ROUTE OF ADMIN (FREE TEXT): INTRAVENOUS DRIP
     Route: 042
     Dates: start: 20230902

REACTIONS (10)
  - Anaphylactic shock [Recovering/Resolving]
  - Seizure [Recovering/Resolving]
  - Dyspnoea [Not Recovered/Not Resolved]
  - Consciousness fluctuating [Recovering/Resolving]
  - Cardiac arrest [Recovered/Resolved]
  - Metabolic acidosis [Unknown]
  - Gastrointestinal haemorrhage [Unknown]
  - White blood cell count increased [Unknown]
  - C-reactive protein increased [Unknown]
  - Blood lactic acid increased [Unknown]

NARRATIVE: CASE EVENT DATE: 20230902
